FAERS Safety Report 7820463-9 (Version None)
Quarter: 2011Q4

REPORT INFORMATION
  Report Type: 
  Country: None (occurrence: None)
  Receive Date: 20111012
  Receipt Date: 20110927
  Transmission Date: 20120403
  Serious: Yes (Hospitalization, Other)
  Sender: FDA-Public Use
  Company Number: 2011SP045872

PATIENT
  Sex: Female

DRUGS (3)
  1. PEG-INTRON [Suspect]
     Indication: HEPATITIS C
     Dates: start: 20110716
  2. VICTRELIS [Suspect]
     Indication: HEPATITIS C
     Dates: start: 20110813
  3. RIBAVIRIN [Suspect]
     Indication: HEPATITIS C
     Dates: start: 20110716

REACTIONS (5)
  - ABDOMINAL DISTENSION [None]
  - ABDOMINAL PAIN [None]
  - ANAEMIA [None]
  - BODY TEMPERATURE INCREASED [None]
  - GASTROINTESTINAL MOTILITY DISORDER [None]
